FAERS Safety Report 4565834-1 (Version None)
Quarter: 2005Q1

REPORT INFORMATION
  Report Type: 
  Country: None (occurrence: None)
  Receive Date: 20050131
  Receipt Date: 20050121
  Transmission Date: 20050727
  Serious: Yes (Life-Threatening, Hospitalization)
  Sender: FDA-Public Use
  Company Number: FR-ABBOTT-05P-056-0287974-00

PATIENT
  Age: 35 Year
  Sex: Female

DRUGS (3)
  1. DEPAKOTE [Suspect]
     Indication: PHOBIA
     Route: 048
     Dates: start: 20041104, end: 20041213
  2. RISPERIDONE [Suspect]
     Indication: PHOBIA
     Route: 048
     Dates: start: 20041102, end: 20041213
  3. GLICLAZIDE [Suspect]
     Indication: DIABETES MELLITUS NON-INSULIN-DEPENDENT
     Route: 048
     Dates: start: 20041202, end: 20041220

REACTIONS (11)
  - CHAPPED LIPS [None]
  - CONJUNCTIVITIS INFECTIVE [None]
  - CYTOLYTIC HEPATITIS [None]
  - DERMATITIS EXFOLIATIVE [None]
  - DRUG RASH WITH EOSINOPHILIA AND SYSTEMIC SYMPTOMS [None]
  - FACE OEDEMA [None]
  - HYPOTENSION [None]
  - LYMPHADENOPATHY [None]
  - OLIGURIA [None]
  - PULMONARY OEDEMA [None]
  - SKIN EXFOLIATION [None]
